FAERS Safety Report 14980004 (Version 1)
Quarter: 2018Q2

REPORT INFORMATION
  Report Type: Spontaneous
  Country: US (occurrence: US)
  Receive Date: 20180606
  Receipt Date: 20180606
  Transmission Date: 20180711
  Serious: No
  Sender: FDA-Public Use
  Company Number: US-ALLERGAN-1748673US

PATIENT
  Age: 40 Year
  Sex: Female

DRUGS (1)
  1. CRINONE [Suspect]
     Active Substance: PROGESTERONE
     Indication: FERTILITY INCREASED
     Dosage: 50 MG, QHS
     Route: 065
     Dates: start: 2009, end: 201609

REACTIONS (5)
  - Headache [Recovered/Resolved]
  - Product storage error [Unknown]
  - Vaginal discharge [Unknown]
  - Inappropriate schedule of drug administration [Unknown]
  - Incorrect route of drug administration [Unknown]

NARRATIVE: CASE EVENT DATE: 201609
